FAERS Safety Report 14858698 (Version 1)
Quarter: 2018Q2

REPORT INFORMATION
  Report Type: Spontaneous
  Country: US (occurrence: US)
  Receive Date: 20180421
  Receipt Date: 20180421
  Transmission Date: 20180711
  Serious: No
  Sender: FDA-Public Use
  Company Number: None

PATIENT
  Age: 44 Year
  Sex: Female
  Weight: 99 kg

DRUGS (9)
  1. DULOXETINE HYDROCHLORIDE. [Suspect]
     Active Substance: DULOXETINE HYDROCHLORIDE
     Indication: DEPRESSION
     Dosage: ?          QUANTITY:1 CAPSULE(S);?
     Route: 048
     Dates: start: 20180123, end: 20180419
  2. HYZAAR [Concomitant]
     Active Substance: HYDROCHLOROTHIAZIDE\LOSARTAN POTASSIUM
  3. IRON [Concomitant]
     Active Substance: IRON
  4. EXCEDRIN [Concomitant]
     Active Substance: ACETAMINOPHEN\ASPIRIN\CAFFEINE
  5. IBUPROFEN. [Concomitant]
     Active Substance: IBUPROFEN
  6. VITAMIN D [Concomitant]
     Active Substance: CHOLECALCIFEROL
  7. LAMOTRIGINE. [Concomitant]
     Active Substance: LAMOTRIGINE
  8. MAGNESIUM [Concomitant]
     Active Substance: MAGNESIUM
  9. DULOXETINE HYDROCHLORIDE. [Suspect]
     Active Substance: DULOXETINE HYDROCHLORIDE
     Indication: ANXIETY
     Dosage: ?          QUANTITY:1 CAPSULE(S);?
     Route: 048
     Dates: start: 20180123, end: 20180419

REACTIONS (10)
  - Malaise [None]
  - Social avoidant behaviour [None]
  - Decreased interest [None]
  - Fear [None]
  - Product substitution issue [None]
  - Depression [None]
  - Anger [None]
  - Feeling abnormal [None]
  - Negative thoughts [None]
  - Drug effect decreased [None]

NARRATIVE: CASE EVENT DATE: 20180202
